FAERS Safety Report 11292770 (Version 1)
Quarter: 2015Q2

REPORT INFORMATION
  Report Type: Spontaneous
  Country: US (occurrence: None)
  Receive Date: 20150623
  Receipt Date: 20150623
  Transmission Date: 20150821
  Serious: Yes (Other)
  Sender: FDA-Public Use
  Company Number: RB-72221-2015

PATIENT
  Sex: Male

DRUGS (1)
  1. MUCINEX DM [Suspect]
     Active Substance: DEXTROMETHORPHAN HYDROBROMIDE\GUAIFENESIN
     Indication: DRUG ABUSE
     Dosage: (TAKING 8-10 TABLETS DAILY FOR LAST 3 YEARS. UNKNOWN)

REACTIONS (5)
  - Nausea [None]
  - Overdose [None]
  - Diarrhoea [None]
  - Insomnia [None]
  - Drug abuse [None]
